FAERS Safety Report 7863801-3 (Version None)
Quarter: 2011Q4

REPORT INFORMATION
  Report Type: 
  Country: None (occurrence: None)
  Receive Date: 20111028
  Receipt Date: 20111020
  Transmission Date: 20120403
  Serious: Yes (Hospitalization)
  Sender: FDA-Public Use
  Company Number: US-BIOGENIDEC-2011BI022917

PATIENT
  Age: 44 Year
  Sex: Female

DRUGS (1)
  1. AVONEX [Suspect]
     Indication: MULTIPLE SCLEROSIS
     Route: 030
     Dates: start: 20101214, end: 20110601

REACTIONS (10)
  - BACK PAIN [None]
  - LUNG INFECTION [None]
  - LABORATORY TEST ABNORMAL [None]
  - LYMPHADENITIS [None]
  - BRONCHITIS [None]
  - PNEUMONIA [None]
  - HYPOTENSION [None]
  - PALLOR [None]
  - PALPITATIONS [None]
  - PULMONARY MASS [None]
